FAERS Safety Report 7360215-X (Version None)
Quarter: 2011Q1

REPORT INFORMATION
  Report Type: 
  Country: None (occurrence: None)
  Receive Date: 20110307
  Receipt Date: 20110221
  Transmission Date: 20110831
  Serious: Yes (Hospitalization)
  Sender: FDA-Public Use
  Company Number: 1000019087

PATIENT
  Age: 82 Year
  Sex: Female

DRUGS (11)
  1. RIVASTIGMINE (RIVASTIGMINE) (RIVASTIGMINE) [Concomitant]
  2. BISOPROLOL (BISOPROLOL) (TABLETS) (BISOPROLOL) [Concomitant]
  3. LORAZEPAM (LORAZEPAM) (TABLETS) (LORAZEPAM) [Concomitant]
  4. ESOMEPRAZOLE (ESOMEPRAZOLE) (TABLETS) (ESOMEPRAZOLE) [Concomitant]
  5. QUETIAPINE (QUETIAPINE) (TABLETS) (QUETIAPINE) [Concomitant]
  6. STRONTIUM RANELATE (STRONTIUM RANELATE) (SOLUTION) (STRONTIUM RANELATE [Concomitant]
  7. MEMANTINE [Suspect]
     Indication: DEMENTIA
     Dosage: (ORAL) (10 MG, (10 MG, 1 IN 1 D), ORAL) (15 MG (15 MG, 1 IN 1 D), ORAL) (20 MG (20 MG, 1 IN 1 D, ORA
     Route: 048
     Dates: start: 20101101, end: 20110107
  8. MEMANTINE [Suspect]
     Indication: DEMENTIA
     Dosage: (ORAL) (10 MG, (10 MG, 1 IN 1 D), ORAL) (15 MG (15 MG, 1 IN 1 D), ORAL) (20 MG (20 MG, 1 IN 1 D, ORA
     Route: 048
     Dates: start: 20110125
  9. MEMANTINE [Suspect]
     Indication: DEMENTIA
     Dosage: (ORAL) (10 MG, (10 MG, 1 IN 1 D), ORAL) (15 MG (15 MG, 1 IN 1 D), ORAL) (20 MG (20 MG, 1 IN 1 D, ORA
     Route: 048
     Dates: start: 20110118, end: 20110124
  10. MEMANTINE [Suspect]
     Indication: DEMENTIA
     Dosage: (ORAL) (10 MG, (10 MG, 1 IN 1 D), ORAL) (15 MG (15 MG, 1 IN 1 D), ORAL) (20 MG (20 MG, 1 IN 1 D, ORA
     Route: 048
     Dates: start: 20110111, end: 20110117
  11. WARFARIN SODIUM [Concomitant]

REACTIONS (4)
  - MOVEMENT DISORDER [None]
  - SCREAMING [None]
  - MYALGIA [None]
  - IMMOBILE [None]
